FAERS Safety Report 24855481 (Version 1)
Quarter: 2025Q1

REPORT INFORMATION
  Report Type: Spontaneous
  Country: FI (occurrence: FI)
  Receive Date: 20250117
  Receipt Date: 20250117
  Transmission Date: 20250409
  Serious: Yes (Other)
  Sender: MSN LABORATORIES PRIVATE LIMITED
  Company Number: FI-MLMSERVICE-20241227-PI323456-00291-2

PATIENT

DRUGS (1)
  1. ROSUVASTATIN [Suspect]
     Active Substance: ROSUVASTATIN
     Indication: Dyslipidaemia
     Route: 065

REACTIONS (3)
  - Drug level increased [Recovered/Resolved]
  - Drug-genetic interaction [Recovered/Resolved]
  - Immune-mediated myositis [Recovered/Resolved]
